FAERS Safety Report 8774243 (Version 2)
Quarter: 2012Q4

REPORT INFORMATION
  Report Type: Report from Study
  Country: DE (occurrence: DE)
  Receive Date: 20120907
  Receipt Date: 20120918
  Transmission Date: 20130627
  Serious: Yes (Hospitalization)
  Sender: FDA-Public Use
  Company Number: DE-US-EMD SERONO, INC.-7159098

PATIENT
  Sex: Female

DRUGS (4)
  1. REBIF [Suspect]
     Indication: MULTIPLE SCLEROSIS
     Route: 058
     Dates: start: 2008, end: 201207
  2. REBIF [Suspect]
     Route: 058
     Dates: start: 201208, end: 201208
  3. REBIF [Suspect]
     Route: 058
     Dates: start: 20120827
  4. REBIF [Suspect]
     Route: 058

REACTIONS (3)
  - Speech disorder [Not Recovered/Not Resolved]
  - Cystitis noninfective [Not Recovered/Not Resolved]
  - Asthenia [Not Recovered/Not Resolved]
